FAERS Safety Report 10332349 (Version 1)
Quarter: 2014Q3

REPORT INFORMATION
  Report Type: Spontaneous
  Country: US (occurrence: US)
  Receive Date: 20140722
  Receipt Date: 20140722
  Transmission Date: 20150326
  Serious: No
  Sender: FDA-Public Use
  Company Number: US-ASTRAZENECA-2014SE15885

PATIENT
  Age: 58 Year
  Sex: Female
  Weight: 59 kg

DRUGS (18)
  1. LEXAPRO [Concomitant]
     Active Substance: ESCITALOPRAM OXALATE
     Indication: AFFECTIVE DISORDER
     Route: 048
     Dates: start: 201302
  2. ASPIRIN. [Concomitant]
     Active Substance: ASPIRIN
     Indication: BLOOD PRESSURE INCREASED
     Route: 048
     Dates: start: 201308
  3. TUDORZA PRESSAIR [Concomitant]
     Active Substance: ACLIDINIUM BROMIDE
     Indication: CHRONIC OBSTRUCTIVE PULMONARY DISEASE
     Route: 055
     Dates: start: 2013
  4. XANAX [Concomitant]
     Active Substance: ALPRAZOLAM
  5. LOSARTAN [Concomitant]
     Active Substance: LOSARTAN
     Indication: BLOOD PRESSURE ABNORMAL
     Route: 048
     Dates: start: 201308
  6. VITAMIN D2 [Concomitant]
     Active Substance: ERGOCALCIFEROL
     Indication: VITAMIN D DEFICIENCY
     Route: 048
     Dates: start: 201402
  7. QUETIAPINE FUMARATE. [Suspect]
     Active Substance: QUETIAPINE FUMARATE
     Indication: BIPOLAR DISORDER
     Dosage: 150 MG IN THE MORNING AND 50 MG AT NIGHT
     Route: 048
     Dates: start: 20140104
  8. RIBAVARIN [Concomitant]
     Active Substance: RIBAVIRIN
     Indication: IMMUNE SYSTEM DISORDER
     Dates: start: 2000
  9. QUETIAPINE FUMARATE. [Suspect]
     Active Substance: QUETIAPINE FUMARATE
     Indication: SLEEP DISORDER
     Dosage: 150 MG IN THE MORNING AND 50 MG AT NIGHT
     Route: 048
     Dates: start: 20140104
  10. ALBUTEROL PROAIR [Concomitant]
     Indication: ASTHMA
     Dates: start: 2012
  11. QUETIAPINE FUMARATE. [Suspect]
     Active Substance: QUETIAPINE FUMARATE
     Indication: POST-TRAUMATIC STRESS DISORDER
     Dosage: 150 MG IN THE MORNING AND 50 MG AT NIGHT
     Route: 048
     Dates: start: 20140104
  12. LAMOTRIGENE [Concomitant]
     Active Substance: LAMOTRIGINE
     Indication: POST-TRAUMATIC STRESS DISORDER
     Route: 048
     Dates: start: 201302
  13. ALBUTEROL PROAIR [Concomitant]
     Indication: ASTHMA
     Dosage: PRN
     Route: 055
     Dates: start: 2011
  14. ANTIBIOTICS (UNSPECIFIED) [Concomitant]
     Active Substance: UNSPECIFIED INGREDIENT
     Dates: start: 201402
  15. LEXAPRO [Concomitant]
     Active Substance: ESCITALOPRAM OXALATE
     Indication: POST-TRAUMATIC STRESS DISORDER
     Route: 048
     Dates: start: 201302
  16. LAMOTRIGENE [Concomitant]
     Active Substance: LAMOTRIGINE
     Indication: ANXIETY
     Route: 048
     Dates: start: 201302
  17. INTERFERON THERAPY [Concomitant]
     Dosage: 3 TIMES PER WEEK
     Dates: start: 2000
  18. RIBAVARIN [Concomitant]
     Active Substance: RIBAVIRIN
     Indication: PNEUMONIA
     Dates: start: 2000

REACTIONS (14)
  - Muscle disorder [Unknown]
  - Oropharyngeal pain [Unknown]
  - Dry throat [Unknown]
  - Dyskinesia [Unknown]
  - Vitamin D deficiency [Unknown]
  - Glossodynia [Unknown]
  - Tongue dry [Unknown]
  - Dry mouth [Unknown]
  - Dysphagia [Unknown]
  - Tooth disorder [Unknown]
  - Oral mucosal discolouration [Unknown]
  - Throat irritation [Not Recovered/Not Resolved]
  - Oral disorder [Not Recovered/Not Resolved]
  - Mouth ulceration [Unknown]

NARRATIVE: CASE EVENT DATE: 201401
